FAERS Safety Report 11986043 (Version 1)
Quarter: 2016Q1

REPORT INFORMATION
  Report Type: Report from Study
  Country: US (occurrence: US)
  Receive Date: 20160202
  Receipt Date: 20160202
  Transmission Date: 20160526
  Serious: No
  Sender: FDA-Public Use
  Company Number: US-ABBVIE-15K-163-1335675-00

PATIENT
  Age: 49 Year
  Sex: Female

DRUGS (2)
  1. HUMIRA [Suspect]
     Active Substance: ADALIMUMAB
     Indication: CROHN^S DISEASE
     Route: 065
     Dates: start: 2006, end: 2007
  2. HUMIRA [Suspect]
     Active Substance: ADALIMUMAB
     Indication: RHEUMATOID ARTHRITIS
     Route: 065
     Dates: end: 201508

REACTIONS (9)
  - Crohn^s disease [Recovered/Resolved]
  - Incorrect product storage [Unknown]
  - Injection site swelling [Unknown]
  - Injection site papule [Recovered/Resolved]
  - Injection site nodule [Recovered/Resolved]
  - Injection site nodule [Recovered/Resolved]
  - Product quality issue [Unknown]
  - Injection site pain [Not Recovered/Not Resolved]
  - Injection site erythema [Recovered/Resolved]

NARRATIVE: CASE EVENT DATE: 2010
